FAERS Safety Report 7112733-7 (Version None)
Quarter: 2010Q4

REPORT INFORMATION
  Report Type: 
  Country: None (occurrence: None)
  Receive Date: 20101119
  Receipt Date: 20101112
  Transmission Date: 20110411
  Serious: Yes (Death, Hospitalization, Other)
  Sender: FDA-Public Use
  Company Number: PHHY2008JP04887

PATIENT
  Sex: Male
  Weight: 52 kg

DRUGS (7)
  1. ZOMETA [Suspect]
     Indication: METASTASES TO BONE
     Dosage: 4 MG
     Route: 042
     Dates: start: 20080125, end: 20080215
  2. ZOMETA [Suspect]
     Route: 042
     Dates: start: 20080215, end: 20080215
  3. ESTRACYT  /SCH/ [Concomitant]
     Indication: PROSTATE CANCER
     Dosage: 2 DF
     Route: 048
     Dates: start: 20070903
  4. OXYCONTIN [Concomitant]
     Indication: ANALGESIC THERAPY
     Dosage: 10 MG
     Route: 048
     Dates: start: 20080127
  5. OPSO DAINIPPON [Concomitant]
     Indication: PAIN
     Dosage: 5 MG
     Route: 048
     Dates: start: 20080218
  6. ZYPREXA [Concomitant]
     Dosage: 5 MG
     Route: 048
     Dates: start: 20080214
  7. LANDSEN [Concomitant]
     Dosage: 0.25 MG
     Route: 048
     Dates: start: 20080215

REACTIONS (32)
  - ASPARTATE AMINOTRANSFERASE INCREASED [None]
  - ASPIRATION PLEURAL CAVITY [None]
  - BLOOD ALBUMIN DECREASED [None]
  - BLOOD ALKALINE PHOSPHATASE INCREASED [None]
  - BLOOD CREATININE INCREASED [None]
  - BLOOD LACTATE DEHYDROGENASE INCREASED [None]
  - BLOOD POTASSIUM INCREASED [None]
  - BLOOD PRESSURE DECREASED [None]
  - BLOOD SODIUM DECREASED [None]
  - BLOOD UREA INCREASED [None]
  - BLOODY DISCHARGE [None]
  - CONVULSION [None]
  - DECREASED APPETITE [None]
  - DIZZINESS [None]
  - DYSPNOEA [None]
  - HAEMATOCRIT DECREASED [None]
  - HAEMOGLOBIN DECREASED [None]
  - HYPOAESTHESIA [None]
  - HYPOCALCAEMIA [None]
  - MALAISE [None]
  - MALIGNANT NEOPLASM PROGRESSION [None]
  - MEAN CELL HAEMOGLOBIN CONCENTRATION DECREASED [None]
  - METASTASES TO LUNG [None]
  - MYOCLONIC EPILEPSY [None]
  - NAUSEA [None]
  - PLATELET COUNT DECREASED [None]
  - PLEURAL EFFUSION [None]
  - PROTEIN TOTAL INCREASED [None]
  - RED BLOOD CELL COUNT DECREASED [None]
  - RESPIRATORY FAILURE [None]
  - URETHRAL HAEMORRHAGE [None]
  - WHITE BLOOD CELL COUNT DECREASED [None]
